FAERS Safety Report 8396595-6 (Version None)
Quarter: 2012Q1

REPORT INFORMATION
  Report Type: 
  Country: None (occurrence: None)
  Receive Date: 20120323
  Receipt Date: 20110414
  Transmission Date: 20120608
  Serious: Yes (Hospitalization)
  Sender: FDA-Public Use
  Company Number: 163-21880-11042099

PATIENT
  Age: 77 Year
  Sex: Male

DRUGS (4)
  1. DEXAMETHASONE [Concomitant]
  2. PLAVIX [Concomitant]
  3. REVLIMID [Suspect]
     Indication: MULTIPLE MYELOMA
     Dosage: 25 MG, DAILY X 21 DAYS EVERY 28 DAYS, PO, 25 MG, DAILY X 21 DAYS EVERY 28 DAYS, PO
     Route: 048
     Dates: start: 20110126, end: 20110409
  4. REVLIMID [Suspect]
     Indication: MULTIPLE MYELOMA
     Dosage: 25 MG, DAILY X 21 DAYS EVERY 28 DAYS, PO, 25 MG, DAILY X 21 DAYS EVERY 28 DAYS, PO
     Route: 048
     Dates: start: 20110412

REACTIONS (2)
  - HIP FRACTURE [None]
  - FALL [None]
